FAERS Safety Report 15956211 (Version 5)
Quarter: 2020Q1

REPORT INFORMATION
  Report Type: Spontaneous
  Country: BR (occurrence: BR)
  Receive Date: 20190213
  Receipt Date: 20200210
  Transmission Date: 20200409
  Serious: Yes (Other)
  Sender: FDA-Public Use
  Company Number: BR-GLAXOSMITHKLINE-BR2017GSK000520

PATIENT
  Sex: Female
  Weight: 74 kg

DRUGS (2)
  1. BENLYSTA [Suspect]
     Active Substance: BELIMUMAB
     Indication: SYSTEMIC LUPUS ERYTHEMATOSUS
     Dosage: UNK
     Dates: start: 20161212
  2. PREDNISONE. [Concomitant]
     Active Substance: PREDNISONE
     Indication: PRODUCT USED FOR UNKNOWN INDICATION
     Dosage: UNK

REACTIONS (15)
  - Cerebrovascular accident [Recovered/Resolved]
  - Product dose omission [Recovered/Resolved]
  - Overdose [Unknown]
  - Diabetes mellitus [Unknown]
  - Pyrexia [Unknown]
  - Cough [Unknown]
  - Circumstance or information capable of leading to medication error [Recovered/Resolved]
  - Rash papular [Unknown]
  - Influenza [Unknown]
  - Body height decreased [Unknown]
  - Localised infection [Unknown]
  - Inappropriate schedule of product administration [Not Recovered/Not Resolved]
  - Weight decreased [Unknown]
  - Pruritus [Unknown]
  - Rash [Unknown]
